FAERS Safety Report 17925213 (Version 1)
Quarter: 2020Q2

REPORT INFORMATION
  Report Type: Spontaneous
  Country: DE (occurrence: DE)
  Receive Date: 20200622
  Receipt Date: 20200622
  Transmission Date: 20200714
  Serious: Yes (Hospitalization)
  Sender: FDA-Public Use
  Company Number: DE-TEVA-2020-DE-1789165

PATIENT
  Age: 79 Year
  Sex: Male

DRUGS (9)
  1. ALLOPURINOL. [Concomitant]
     Active Substance: ALLOPURINOL
     Dosage: 150 MILLIGRAM DAILY; 1-0-0-0
  2. ACETYLSALICYLS?URE [Concomitant]
     Active Substance: ASPIRIN
     Dosage: 100 MILLIGRAM DAILY; 1-0-0-0
  3. METAMIZOL [Concomitant]
     Active Substance: METAMIZOLE SODIUM
     Dosage: 1500 MILLIGRAM DAILY; 1-1-1-0
  4. CLINDAMYCIN. [Suspect]
     Active Substance: CLINDAMYCIN
     Dosage: 1200 MILLIGRAM DAILY; 1-0-1-0
  5. CANDESARTAN. [Concomitant]
     Active Substance: CANDESARTAN
     Dosage: 8 MILLIGRAM DAILY;  1-0-0-0
  6. BISOPROLOL [Concomitant]
     Active Substance: BISOPROLOL
     Dosage: .5 DOSAGE FORMS DAILY; 5 MG, 0.5-0-0-0
  7. AMOXICILLIN. [Suspect]
     Active Substance: AMOXICILLIN
     Dosage: 2 GRAM DAILY; 1-0-1-0
  8. CEFAZOLIN [Suspect]
     Active Substance: CEFAZOLIN
     Route: 042
     Dates: end: 20200317
  9. ATORVASTATIN [Concomitant]
     Active Substance: ATORVASTATIN
     Dosage: 40 MILLIGRAM DAILY; 1-0-0-0

REACTIONS (3)
  - Atrial fibrillation [Unknown]
  - Rash [Unknown]
  - Pruritus [Unknown]
